FAERS Safety Report 18257911 (Version 5)
Quarter: 2022Q3

REPORT INFORMATION
  Report Type: Spontaneous
  Country: CA (occurrence: CA)
  Receive Date: 20200911
  Receipt Date: 20220822
  Transmission Date: 20221027
  Serious: Yes (Other)
  Sender: FDA-Public Use
  Company Number: CA-TAKEDA-2020TUS038172

PATIENT
  Age: 64 Year
  Sex: Female

DRUGS (5)
  1. ENTYVIO [Suspect]
     Active Substance: VEDOLIZUMAB
     Indication: Product used for unknown indication
     Dosage: 300 MILLIGRAM
     Route: 042
  2. AZATHIOPRINE [Suspect]
     Active Substance: AZATHIOPRINE
     Indication: Product used for unknown indication
     Dosage: UNK
     Route: 065
     Dates: start: 2012
  3. BUDESONIDE [Suspect]
     Active Substance: BUDESONIDE
     Indication: Product used for unknown indication
     Dosage: UNK
     Route: 065
     Dates: start: 201910, end: 2019
  4. HUMIRA [Suspect]
     Active Substance: ADALIMUMAB
     Indication: Product used for unknown indication
     Dosage: UNK
     Route: 058
  5. SULFASALAZINE [Suspect]
     Active Substance: SULFASALAZINE
     Indication: Product used for unknown indication
     Dosage: 1.5 MILLIGRAM, BID
     Route: 048

REACTIONS (9)
  - Arthritis enteropathic [Unknown]
  - Pancreatitis [Unknown]
  - Clostridium difficile infection [Unknown]
  - Crohn^s disease [Unknown]
  - Insomnia [Unknown]
  - Weight increased [Unknown]
  - Drug ineffective [Unknown]
  - Drug intolerance [Unknown]
  - Therapeutic product effect incomplete [Unknown]
